FAERS Safety Report 7918627-9 (Version None)
Quarter: 2011Q4

REPORT INFORMATION
  Report Type: 
  Country: None (occurrence: None)
  Receive Date: 20111114
  Receipt Date: 20111028
  Transmission Date: 20120403
  Serious: Yes (Hospitalization, Other)
  Sender: FDA-Public Use
  Company Number: NSR_00303_2011

PATIENT
  Age: 43 Year
  Sex: Male

DRUGS (5)
  1. AMANTADINE HCL [Suspect]
     Indication: PARKINSONISM
     Dosage: (100 MG BID)
  2. ROPINIROLE [Suspect]
     Indication: PARKINSONISM
     Dosage: (0.5 MG TID)
  3. CARBIDOPA AND LEVODOPA [Suspect]
     Indication: PARKINSONISM
     Dosage: (DF [25MG/100MG])
  4. BENZHEXOL /00002601/ (BENZHEXOL) [Suspect]
     Indication: PARKINSONISM
     Dosage: (2 MG QD)
  5. VENLAFAXINE [Suspect]
     Indication: DEPRESSION
     Dosage: (75 MG QD)

REACTIONS (22)
  - HAEMODIALYSIS [None]
  - SEROTONIN SYNDROME [None]
  - DEPRESSION [None]
  - HYPERTONIA [None]
  - RENAL FAILURE ACUTE [None]
  - SOMNOLENCE [None]
  - MYDRIASIS [None]
  - MENTAL STATUS CHANGES [None]
  - DELIRIUM [None]
  - HYPERHIDROSIS [None]
  - CLONUS [None]
  - METABOLIC ACIDOSIS [None]
  - RHABDOMYOLYSIS [None]
  - ENCEPHALOPATHY [None]
  - TREMOR [None]
  - HYPERREFLEXIA [None]
  - FLUSHING [None]
  - DYSPHAGIA [None]
  - SEPSIS [None]
  - PNEUMONIA [None]
  - SHOCK [None]
  - AGITATION [None]
